FAERS Safety Report 8412807-4 (Version None)
Quarter: 2012Q2

REPORT INFORMATION
  Report Type: 
  Country: None (occurrence: None)
  Receive Date: 20120605
  Receipt Date: 20120523
  Transmission Date: 20120825
  Serious: No
  Sender: FDA-Public Use
  Company Number: US-AMGEN-USASP2012033162

PATIENT
  Age: 38 Year
  Sex: Female

DRUGS (3)
  1. FOLIC ACID [Concomitant]
     Dosage: 1 MG, UNK
  2. METHOTREXATE [Concomitant]
     Dosage: 25 MG, WEEKLY
  3. ENBREL [Suspect]
     Indication: RHEUMATOID ARTHRITIS
     Dosage: 50 MG, WEEKLY
     Dates: start: 20120417, end: 20120523

REACTIONS (2)
  - HYPERSENSITIVITY [None]
  - INJECTION SITE REACTION [None]
